FAERS Safety Report 8880044 (Version 1)
Quarter: 2012Q4

REPORT INFORMATION
  Report Type: 
  Country: CN (occurrence: CN)
  Receive Date: 20121031
  Receipt Date: 20121031
  Transmission Date: 20130627
  Serious: Yes (Other)
  Sender: FDA-Public Use
  Company Number: CN-BRISTOL-MYERS SQUIBB COMPANY-17053448

PATIENT
  Age: 53 Year
  Sex: Male

DRUGS (1)
  1. BARACLUDE [Suspect]
     Route: 048
     Dates: start: 200611

REACTIONS (8)
  - Hepatitis B surface antigen positive [Unknown]
  - Type 2 diabetes mellitus [Recovering/Resolving]
  - Insomnia [Unknown]
  - Cough [Unknown]
  - Urinary tract infection [Not Recovered/Not Resolved]
  - Swollen tongue [Unknown]
  - Pain [Recovering/Resolving]
  - Myalgia [Unknown]
